FAERS Safety Report 12472584 (Version 1)
Quarter: 2016Q2

REPORT INFORMATION
  Report Type: Spontaneous
  Country: CA (occurrence: CA)
  Receive Date: 20160616
  Receipt Date: 20160616
  Transmission Date: 20160815
  Serious: Yes (Other)
  Sender: FDA-Public Use
  Company Number: CA-JNJFOC-20160608261

PATIENT
  Sex: Female

DRUGS (4)
  1. IBUPROFEN. [Suspect]
     Active Substance: IBUPROFEN
     Route: 048
  2. VITAMIN D [Suspect]
     Active Substance: CHOLECALCIFEROL
     Indication: VITAMIN SUPPLEMENTATION
     Route: 065
  3. CALCIUM [Suspect]
     Active Substance: CALCIUM
     Indication: MINERAL SUPPLEMENTATION
     Route: 065
  4. IBUPROFEN. [Suspect]
     Active Substance: IBUPROFEN
     Indication: SUPPLEMENTATION THERAPY
     Dosage: MAXIMUM 3 TIMES PER WEEK
     Route: 048

REACTIONS (3)
  - Off label use [Recovered/Resolved]
  - Product use issue [Recovered/Resolved]
  - Transient ischaemic attack [Recovered/Resolved]
